FAERS Safety Report 11677807 (Version 1)
Quarter: 2015Q4

REPORT INFORMATION
  Report Type: Spontaneous
  Country: US (occurrence: US)
  Receive Date: 20151028
  Receipt Date: 20151028
  Transmission Date: 20160304
  Serious: No
  Sender: FDA-Public Use
  Company Number: US-MYLANLABS-2015M1003398

PATIENT
  Sex: Female

DRUGS (2)
  1. CABERGOLINE. [Concomitant]
     Active Substance: CABERGOLINE
     Dosage: UNK
  2. BROMOCRIPTINE [Suspect]
     Active Substance: BROMOCRIPTINE
     Dosage: UNK

REACTIONS (1)
  - Drug ineffective [Not Recovered/Not Resolved]
